FAERS Safety Report 4380165-0 (Version None)
Quarter: 2004Q2

REPORT INFORMATION
  Report Type: 
  Country: None (occurrence: None)
  Receive Date: 20040614
  Receipt Date: 20040426
  Transmission Date: 20050107
  Serious: No
  Sender: FDA-Public Use
  Company Number: M04-341-127

PATIENT
  Age: 79 Year
  Sex: Female

DRUGS (1)
  1. VELCADE [Suspect]
     Indication: MULTIPLE MYELOMA
     Dosage: 2.5 MG : INTRAVENOUS BOLUS
     Route: 040
     Dates: start: 20040329, end: 20040423

REACTIONS (2)
  - INJECTION SITE PIGMENTATION CHANGES [None]
  - THROMBOCYTOPENIA [None]
